FAERS Safety Report 17113820 (Version 1)
Quarter: 2019Q4

REPORT INFORMATION
  Report Type: Spontaneous
  Country: US (occurrence: US)
  Receive Date: 20191205
  Receipt Date: 20191205
  Transmission Date: 20200122
  Serious: Yes (Death, Other)
  Sender: FDA-Public Use
  Company Number: US-CELLTRION INC.-2019US027075

PATIENT

DRUGS (1)
  1. INFLIXIMAB (UNKNOWN) [Suspect]
     Active Substance: INFLIXIMAB
     Indication: CROHN^S DISEASE
     Dosage: UNK

REACTIONS (4)
  - Psoriasis [Recovering/Resolving]
  - Acquired acrodermatitis enteropathica [Recovering/Resolving]
  - Perineal fistula [Recovering/Resolving]
  - Transplantation complication [Fatal]
